FAERS Safety Report 22375053 (Version 5)
Quarter: 2025Q3

REPORT INFORMATION
  Report Type: Spontaneous
  Country: EU (occurrence: EU)
  Receive Date: 20230527
  Receipt Date: 20250922
  Transmission Date: 20251020
  Serious: Yes (Other)
  Sender: AUROBINDO
  Company Number: EU-TEVA-2023-SK-2888238

PATIENT
  Sex: Female

DRUGS (8)
  1. GABAPENTIN [Suspect]
     Active Substance: GABAPENTIN
     Indication: Neuralgia
     Route: 065
  2. TRAMADOL [Suspect]
     Active Substance: TRAMADOL
     Indication: Neuralgia
     Route: 065
  3. METAMIZOLE [Concomitant]
     Active Substance: METAMIZOLE
     Indication: Neuralgia
     Route: 065
  4. CAPSAICIN [Concomitant]
     Active Substance: CAPSAICIN
     Indication: Neuralgia
     Route: 065
  5. LIDOCAINE [Concomitant]
     Active Substance: LIDOCAINE
     Indication: Neuralgia
     Route: 065
  6. KETAMINE [Concomitant]
     Active Substance: KETAMINE
     Indication: Neuralgia
     Route: 065
  7. MAGNESIUM [Concomitant]
     Active Substance: MAGNESIUM
     Indication: Neuralgia
     Route: 065
  8. VITAMIN C [Concomitant]
     Active Substance: ASCORBIC ACID
     Indication: Neuralgia
     Route: 042

REACTIONS (8)
  - Sedation complication [Unknown]
  - Sedation [Unknown]
  - Anxiety [Unknown]
  - Depression [Recovered/Resolved]
  - Hyperhidrosis [Unknown]
  - Inadequate analgesia [Unknown]
  - Drug intolerance [Unknown]
  - Therapeutic product effect incomplete [Recovered/Resolved]
